FAERS Safety Report 9685238 (Version 1)
Quarter: 2013Q4

REPORT INFORMATION
  Report Type: Spontaneous
  Country: US (occurrence: US)
  Receive Date: 20131113
  Receipt Date: 20131113
  Transmission Date: 20140711
  Serious: No
  Sender: FDA-Public Use
  Company Number: US-009507513-1311USA004605

PATIENT
  Age: 83 Year
  Sex: Female
  Weight: 4.99 kg

DRUGS (1)
  1. OXYTROL FOR WOMEN [Suspect]
     Indication: BLADDER DISORDER
     Dosage: 1 DF, UNKNOWN
     Route: 062
     Dates: start: 20131021

REACTIONS (1)
  - Application site discolouration [Not Recovered/Not Resolved]
